FAERS Safety Report 8612081-X (Version None)
Quarter: 2012Q3

REPORT INFORMATION
  Report Type: 
  Country: None (occurrence: None)
  Receive Date: 20120822
  Receipt Date: 20120813
  Transmission Date: 20120928
  Serious: No
  Sender: FDA-Public Use
  Company Number: US-ASTRAZENECA-2012SE50499

PATIENT
  Age: 25 Year
  Sex: Male
  Weight: 77.1 kg

DRUGS (12)
  1. ASPIRIN [Concomitant]
     Indication: CARDIAC DISORDER
  2. FLONASE [Concomitant]
  3. PRILOSEC [Suspect]
     Route: 048
  4. METOPROLOL TARTRATE [Concomitant]
     Indication: BLOOD PRESSURE ABNORMAL
  5. ENALAPRIL MALEATE [Concomitant]
     Indication: CARDIAC DISORDER
  6. NEXIUM [Suspect]
     Indication: DYSPEPSIA
     Route: 048
  7. NEXIUM [Suspect]
     Indication: GASTROOESOPHAGEAL REFLUX DISEASE
     Route: 048
  8. NEXIUM [Suspect]
     Route: 048
  9. BECLOFEN PUMP [Concomitant]
  10. NEXIUM [Suspect]
     Route: 048
  11. MIRALAX [Concomitant]
  12. TRANSDERM SCOP PATCH [Concomitant]

REACTIONS (4)
  - VOMITING [None]
  - DRUG DOSE OMISSION [None]
  - RETCHING [None]
  - DRUG INEFFECTIVE [None]
